FAERS Safety Report 9713233 (Version 1)
Quarter: 2013Q4

REPORT INFORMATION
  Report Type: Spontaneous
  Country: US (occurrence: US)
  Receive Date: 20131126
  Receipt Date: 20131126
  Transmission Date: 20140711
  Serious: Yes (Other)
  Sender: FDA-Public Use
  Company Number: US-ASTELLAS-2013US009451

PATIENT
  Sex: 0

DRUGS (1)
  1. LEXISCAN [Suspect]
     Indication: PRODUCT USED FOR UNKNOWN INDICATION
     Dosage: TOTAL DOSE
     Route: 042
     Dates: start: 20130830, end: 20130830

REACTIONS (2)
  - Syncope [Recovered/Resolved]
  - Heart rate increased [Recovered/Resolved]
